FAERS Safety Report 5634535-0 (Version None)
Quarter: 2008Q1

REPORT INFORMATION
  Report Type: 
  Country: None (occurrence: None)
  Receive Date: 20080222
  Receipt Date: 20080218
  Transmission Date: 20080703
  Serious: Yes (Life-Threatening)
  Sender: FDA-Public Use
  Company Number: PHFR2008GB00892

PATIENT
  Age: 55 Year
  Sex: Female

DRUGS (9)
  1. ALISKIREN [Suspect]
     Indication: HYPERTENSION
     Dosage: 150MG / DAY
     Route: 048
     Dates: start: 20071127, end: 20080114
  2. DICLOFENAC SODIUM [Suspect]
     Indication: PAIN
     Route: 048
     Dates: start: 20050131, end: 20080114
  3. SERTRALINE [Suspect]
     Indication: DEPRESSION
     Dosage: 100MG / DAY
     Route: 048
     Dates: start: 20070101, end: 20071127
  4. ATENOLOL [Concomitant]
     Indication: HYPERTENSION
     Dosage: 100MG / DAY
     Route: 048
     Dates: start: 20010430
  5. CO-CODAMOL [Concomitant]
     Indication: PAIN
     Dosage: 2 DF, QID
     Route: 048
     Dates: start: 20030717, end: 20080114
  6. LISINOPRIL [Concomitant]
     Indication: HYPERTENSION
     Dosage: 20MG / DAY
     Route: 048
     Dates: start: 20061107
  7. OMEPRAZOLE [Concomitant]
     Indication: DYSPEPSIA
     Dosage: 40MG / DAY
     Route: 048
     Dates: start: 20030717
  8. ZOLPIDEM [Concomitant]
     Indication: INSOMNIA
     Dosage: 5MG / DAY
     Route: 048
     Dates: start: 20010828
  9. ZOPICLONE [Concomitant]
     Indication: INSOMNIA
     Dosage: 7.5MG / DAY
     Route: 048
     Dates: start: 20010830, end: 20080114

REACTIONS (2)
  - HAEMOGLOBIN DECREASED [None]
  - IRON DEFICIENCY ANAEMIA [None]
